FAERS Safety Report 13449220 (Version 2)
Quarter: 2017Q2

REPORT INFORMATION
  Report Type: Spontaneous
  Country: TR (occurrence: TR)
  Receive Date: 20170417
  Receipt Date: 20170421
  Transmission Date: 20170830
  Serious: Yes (Other)
  Sender: FDA-Public Use
  Company Number: TR-BAYER-2017-062332

PATIENT
  Age: 56 Year
  Sex: Male
  Weight: 115 kg

DRUGS (3)
  1. INSULATARD HM [Concomitant]
     Active Substance: INSULIN HUMAN
     Dosage: 40 IU, QD
  2. CORASPIN 100 MG [Suspect]
     Active Substance: ASPIRIN
     Indication: POSTOPERATIVE CARE
     Dosage: 100 MG, UNK
  3. TRANDOLAPRIL W/VERAPAMIL [Concomitant]
     Active Substance: TRANDOLAPRIL\VERAPAMIL HYDROCHLORIDE
     Dosage: UNK

REACTIONS (5)
  - Laboratory test abnormal [None]
  - Compartment syndrome [None]
  - Muscle tightness [None]
  - Induration [None]
  - Hyperaesthesia [None]
